FAERS Safety Report 15255597 (Version 1)
Quarter: 2018Q3

REPORT INFORMATION
  Report Type: Spontaneous
  Country: US (occurrence: US)
  Receive Date: 20180808
  Receipt Date: 20180808
  Transmission Date: 20181010
  Serious: Yes (Hospitalization)
  Sender: FDA-Public Use
  Company Number: US-TEVA-2018-US-938896

PATIENT
  Age: 46 Year
  Sex: Female

DRUGS (5)
  1. PREDNISONE. [Suspect]
     Active Substance: PREDNISONE
     Indication: DIARRHOEA
  2. ARMONAIR RESPICLICK [Suspect]
     Active Substance: FLUTICASONE PROPIONATE
     Indication: ASTHMA
     Dosage: ACTUATION INHALER
     Route: 055
  3. PREDNISONE. [Suspect]
     Active Substance: PREDNISONE
     Indication: CHILLS
  4. PREDNISONE. [Suspect]
     Active Substance: PREDNISONE
     Indication: HEADACHE
     Dosage: STEROID DOSE PACK
     Route: 065
  5. PREDNISONE. [Suspect]
     Active Substance: PREDNISONE
     Indication: COUGH

REACTIONS (6)
  - Bronchopulmonary aspergillosis [Unknown]
  - Bronchopleural fistula [Unknown]
  - Pleural effusion [Unknown]
  - Tissue rupture [Unknown]
  - Aspergilloma [Unknown]
  - Pneumothorax [Unknown]
